FAERS Safety Report 13249141 (Version 1)
Quarter: 2017Q1

REPORT INFORMATION
  Report Type: Spontaneous
  Country: US (occurrence: US)
  Receive Date: 20170218
  Receipt Date: 20170218
  Transmission Date: 20170428
  Serious: No
  Sender: FDA-Public Use
  Company Number: US-ALLERGAN-1653481US

PATIENT
  Sex: Female
  Weight: 49.89 kg

DRUGS (3)
  1. XALATAN [Concomitant]
     Active Substance: LATANOPROST
     Indication: GLAUCOMA
     Route: 047
  2. RESTASIS [Suspect]
     Active Substance: CYCLOSPORINE
     Indication: DRY EYE
     Dosage: 2 GTT, BID
     Route: 047
     Dates: start: 2008, end: 2010
  3. LACTULOSE. [Concomitant]
     Active Substance: LACTULOSE
     Indication: HEPATIC ENCEPHALOPATHY
     Route: 048

REACTIONS (5)
  - Eye movement disorder [Recovered/Resolved]
  - Foreign body sensation in eyes [Recovered/Resolved]
  - Incorrect product storage [Unknown]
  - Diplopia [Recovered/Resolved]
  - Night blindness [Recovered/Resolved]

NARRATIVE: CASE EVENT DATE: 2008
